FAERS Safety Report 18147601 (Version 1)
Quarter: 2020Q3

REPORT INFORMATION
  Report Type: Spontaneous
  Country: CN (occurrence: CN)
  Receive Date: 20200814
  Receipt Date: 20200814
  Transmission Date: 20201103
  Serious: Yes (Hospitalization, Other)
  Sender: FDA-Public Use
  Company Number: CN-SCIEGEN-2020SCILIT00179

PATIENT
  Age: 72 Year
  Sex: Female

DRUGS (3)
  1. ATORVASTATIN CALCIUM. [Suspect]
     Active Substance: ATORVASTATIN CALCIUM
     Indication: PRODUCT USED FOR UNKNOWN INDICATION
     Route: 065
  2. LORATADINE. [Interacting]
     Active Substance: LORATADINE
     Indication: RASH ERYTHEMATOUS
     Route: 065
  3. IMATINIB. [Suspect]
     Active Substance: IMATINIB MESYLATE
     Indication: GASTROINTESTINAL STROMAL TUMOUR
     Route: 065

REACTIONS (5)
  - Periorbital oedema [Unknown]
  - Drug eruption [Unknown]
  - Skin fissures [Unknown]
  - Skin exfoliation [Unknown]
  - Drug interaction [Unknown]
